FAERS Safety Report 7001828-4 (Version None)
Quarter: 2010Q3

REPORT INFORMATION
  Report Type: 
  Country: None (occurrence: None)
  Receive Date: 20100920
  Receipt Date: 20071105
  Transmission Date: 20110219
  Serious: Yes (Hospitalization, Other)
  Sender: FDA-Public Use
  Company Number: US-ASTRAZENECA-2006UW25480

PATIENT
  Age: 15915 Day
  Sex: Female
  Weight: 114.8 kg

DRUGS (16)
  1. SEROQUEL [Suspect]
     Indication: DEPRESSION
     Dosage: 25 TO 200 MG
     Route: 048
     Dates: start: 20030109
  2. SEROQUEL [Suspect]
     Dosage: 50 MG, 100 MG
     Route: 048
     Dates: start: 20040101, end: 20060101
  3. RISPERDAL [Concomitant]
  4. LASIX [Concomitant]
     Route: 048
     Dates: start: 20050909
  5. DIOVAN [Concomitant]
     Route: 048
     Dates: start: 20060323
  6. NEURONTIN [Concomitant]
     Dosage: 600 MG, 2 CAPSULES EVERY 8 HOURS
     Route: 048
  7. NEXIUM [Concomitant]
     Route: 048
     Dates: start: 20050909
  8. HYDROCHLOROTHIAZIDE [Concomitant]
     Indication: DIURETIC THERAPY
     Dates: start: 20050425
  9. COREG [Concomitant]
     Dates: start: 20050425
  10. ADVAIR DISKUS 100/50 [Concomitant]
     Dosage: 250/50, 1 PUFF, EVERY 12 HOURS
     Route: 055
     Dates: start: 20050425
  11. COZAAR [Concomitant]
     Route: 048
     Dates: start: 20060324
  12. NOVOLOG [Concomitant]
     Dosage: 3/13 UNITS, BEFORE MEALS AND BEDTIME
     Route: 058
  13. SOMA [Concomitant]
     Dates: start: 20060323
  14. DIAZEPAM [Concomitant]
     Dates: start: 20060323
  15. METFORMIN [Concomitant]
     Dates: start: 20050425
  16. ASPIRIN [Concomitant]
     Dates: start: 20060324

REACTIONS (4)
  - DIABETES MELLITUS [None]
  - DIABETIC COMA [None]
  - DIABETIC KETOACIDOSIS [None]
  - TYPE 2 DIABETES MELLITUS [None]
